FAERS Safety Report 6669015-7 (Version None)
Quarter: 2010Q2

REPORT INFORMATION
  Report Type: 
  Country: None (occurrence: None)
  Receive Date: 20100406
  Receipt Date: 20100322
  Transmission Date: 20101027
  Serious: Yes (Disabling)
  Sender: FDA-Public Use
  Company Number: GXKR2010MX01692

PATIENT
  Age: 41 Year
  Sex: Female

DRUGS (2)
  1. TOPIRAMATE [Suspect]
     Indication: MIGRAINE
     Dosage: 25 MG
     Route: 048
     Dates: start: 20100318, end: 20100319
  2. IBUPROFEN [Concomitant]
     Dosage: UNK
     Dates: start: 20100318, end: 20100319

REACTIONS (1)
  - FACIAL PALSY [None]
